FAERS Safety Report 5314253-9 (Version None)
Quarter: 2007Q2

REPORT INFORMATION
  Report Type: 
  Country: None (occurrence: None)
  Receive Date: 20070425
  Receipt Date: 20070417
  Transmission Date: 20071010
  Serious: Yes (Other)
  Sender: FDA-Public Use
  Company Number: S07-USA-01638-01

PATIENT
  Age: 58 Year
  Sex: Female

DRUGS (6)
  1. THYROID TAB [Suspect]
     Indication: HYPOTHYROIDISM
     Dosage: 150 MG QAM PO
     Route: 048
     Dates: start: 19920101
  2. THYROID TAB [Suspect]
     Indication: HYPOTHYROIDISM
     Dosage: 60 MG QHS PO
     Route: 048
     Dates: start: 19920101
  3. EVISTA [Suspect]
     Indication: OSTEOPOROSIS
     Dosage: 60 MG QD
     Dates: start: 20070410, end: 20070416
  4. ROCALTROL [Concomitant]
  5. HECTOROL [Concomitant]
  6. CORTEF [Concomitant]

REACTIONS (6)
  - BREAST CANCER FEMALE [None]
  - DEPRESSION [None]
  - DRUG INTERACTION [None]
  - FATIGUE [None]
  - HYPOTHYROIDISM [None]
  - OSTEOPOROSIS [None]
